FAERS Safety Report 5672921-3 (Version None)
Quarter: 2008Q1

REPORT INFORMATION
  Report Type: 
  Country: None (occurrence: None)
  Receive Date: 20080319
  Receipt Date: 20080313
  Transmission Date: 20080703
  Serious: Yes (Hospitalization, Disabling, Other)
  Sender: FDA-Public Use
  Company Number: A0715250A

PATIENT
  Age: 30 Year
  Sex: Male

DRUGS (1)
  1. ARRANON [Suspect]
     Route: 042

REACTIONS (3)
  - PERIPHERAL SENSORY NEUROPATHY [None]
  - RENAL FAILURE ACUTE [None]
  - TUMOUR LYSIS SYNDROME [None]
